FAERS Safety Report 6660565-6 (Version None)
Quarter: 2010Q1

REPORT INFORMATION
  Report Type: 
  Country: None (occurrence: None)
  Receive Date: 20100331
  Receipt Date: 20100325
  Transmission Date: 20100710
  Serious: Yes (Hospitalization, Other)
  Sender: FDA-Public Use
  Company Number: SE-BRISTOL-MYERS SQUIBB COMPANY-14813786

PATIENT
  Age: 73 Year
  Sex: Male

DRUGS (10)
  1. ORENCIA [Suspect]
     Indication: RHEUMATOID ARTHRITIS
     Dates: start: 20090211, end: 20090430
  2. TRADOLAN [Concomitant]
     Dosage: TRADOLAN RETARD PROLONGED-RELEASE TABLET 100 MG (LANNACHER HEILMITTEL GES.M.B.H.)
  3. COZAAR [Concomitant]
     Dosage: COZAAR FILM-COATED TABLET 50 MG
  4. KALCIPOS-D [Concomitant]
     Dosage: 1 DF = CHEWABLE TABLET 500 MG/400 IU
  5. ALFUZOSIN HCL [Concomitant]
     Dosage: OD PROLONGED-RELEASE TABLET 10 MG
  6. ALENDRONIC ACID [Concomitant]
  7. WARFARIN SODIUM [Concomitant]
  8. FURIX [Concomitant]
     Dosage: SOLUTION FOR INJECTION 10 MG/ML
  9. ALVEDON FORTE [Concomitant]
     Dosage: TABS
  10. ATENOLOL [Concomitant]

REACTIONS (3)
  - BENIGN PROSTATIC HYPERPLASIA [None]
  - SEPSIS [None]
  - UROSEPSIS [None]
